FAERS Safety Report 13877370 (Version 1)
Quarter: 2017Q3

REPORT INFORMATION
  Report Type: Spontaneous
  Country: US (occurrence: US)
  Receive Date: 20170817
  Receipt Date: 20170817
  Transmission Date: 20171127
  Serious: No
  Sender: FDA-Public Use
  Company Number: PHEH2017US024368

PATIENT
  Sex: Male

DRUGS (1)
  1. AMANTADINE SANDOZ [Suspect]
     Active Substance: AMANTADINE
     Indication: NERVOUS SYSTEM DISORDER
     Dosage: 100 MG, TID
     Route: 065

REACTIONS (1)
  - Hypoaesthesia [Unknown]
